FAERS Safety Report 12890833 (Version 2)
Quarter: 2016Q4

REPORT INFORMATION
  Report Type: Report from Study
  Country: JP (occurrence: JP)
  Receive Date: 20161027
  Receipt Date: 20161201
  Transmission Date: 20170207
  Serious: Yes (Death, Hospitalization, Other)
  Sender: FDA-Public Use
  Company Number: JP-GILEAD-2016-0239807

PATIENT
  Age: 85 Year
  Sex: Female

DRUGS (8)
  1. RENIVACE [Concomitant]
     Active Substance: ENALAPRIL
     Dosage: 2.5 MG, 1D
     Dates: start: 20110325
  2. RIZE (JAPAN) [Concomitant]
     Dosage: 10 MG, 1D
  3. METHISTA [Concomitant]
     Active Substance: CARBOCYSTEINE
     Dosage: 1000 MG, 1D
  4. FUROSEMIDE. [Concomitant]
     Active Substance: FUROSEMIDE
     Dosage: 40 MG, 1D
     Dates: start: 20110325
  5. PURSENNID [Concomitant]
     Active Substance: SENNOSIDES A AND B
     Dosage: 24 MG, 1D
  6. AMBRISENTAN [Suspect]
     Active Substance: AMBRISENTAN
     Indication: PULMONARY ARTERIAL HYPERTENSION
     Dosage: 5 MG, QD
     Route: 048
     Dates: start: 20110518, end: 20110603
  7. MEXITIL [Concomitant]
     Active Substance: MEXILETINE HYDROCHLORIDE
     Dosage: 200 MG, 1D
  8. BAYASPIRIN [Concomitant]
     Active Substance: ASPIRIN
     Dosage: 100 MG, 1D

REACTIONS (4)
  - Dyspnoea [Unknown]
  - Pollakiuria [Unknown]
  - Pneumonia [Unknown]
  - Cardiac disorder [Fatal]

NARRATIVE: CASE EVENT DATE: 20110603
